FAERS Safety Report 9064484 (Version 1)
Quarter: 2013Q1

REPORT INFORMATION
  Report Type: Spontaneous
  Country: US (occurrence: US)
  Receive Date: 20130214
  Receipt Date: 20130214
  Transmission Date: 20140127
  Serious: No
  Sender: FDA-Public Use
  Company Number: US-009507513-1302USA002108

PATIENT
  Age: 67 None
  Sex: Female

DRUGS (6)
  1. ZETIA [Suspect]
     Indication: BLOOD CHOLESTEROL INCREASED
     Dosage: 10 MG, QD
     Route: 048
     Dates: start: 201212
  2. ZOLOFT [Concomitant]
  3. SYNTHROID [Concomitant]
  4. PROPRANOLOL HYDROCHLORIDE [Concomitant]
  5. FLONASE [Concomitant]
  6. CORICIDIN HBP CHEST CONGESTION AND COUGH [Concomitant]

REACTIONS (3)
  - Abdominal pain [Not Recovered/Not Resolved]
  - Sinus headache [Not Recovered/Not Resolved]
  - Sinus congestion [Not Recovered/Not Resolved]
